FAERS Safety Report 5075555-7 (Version None)
Quarter: 2006Q3

REPORT INFORMATION
  Report Type: 
  Country: None (occurrence: None)
  Receive Date: 20060809
  Receipt Date: 20051130
  Transmission Date: 20061208
  Serious: Yes (Other)
  Sender: FDA-Public Use
  Company Number: US-MERCK-0512USA00123

PATIENT
  Age: 39 Year
  Sex: Female

DRUGS (5)
  1. SINGULAIR [Suspect]
     Indication: ASTHMA
     Route: 048
     Dates: start: 20050401, end: 20050501
  2. SINGULAIR [Suspect]
     Route: 048
     Dates: start: 20051129
  3. ADVAIR DISKUS 100/50 [Concomitant]
     Route: 065
  4. FLONASE [Concomitant]
     Route: 065
  5. ALBUTEROL [Concomitant]
     Route: 065

REACTIONS (2)
  - CAESAREAN SECTION [None]
  - DRUG EXPOSURE DURING PREGNANCY [None]
